FAERS Safety Report 12118936 (Version 1)
Quarter: 2016Q1

REPORT INFORMATION
  Report Type: Spontaneous
  Country: CA (occurrence: CA)
  Receive Date: 20160226
  Receipt Date: 20160226
  Transmission Date: 20160526
  Serious: Yes (Disabling)
  Sender: FDA-Public Use
  Company Number: CA-TEVA-637528ACC

PATIENT
  Age: 68 Year
  Sex: Female
  Weight: 81.72 kg

DRUGS (1)
  1. RISPERIDONE. [Suspect]
     Active Substance: RISPERIDONE
     Indication: DEPRESSION
     Dosage: .25 MILLIGRAM DAILY;
     Route: 048

REACTIONS (7)
  - Fatigue [Recovered/Resolved]
  - Paraesthesia [Recovered/Resolved]
  - Dyspepsia [Recovered/Resolved]
  - Weight increased [Recovered/Resolved]
  - Back pain [Recovered/Resolved]
  - Chromaturia [Recovered/Resolved]
  - Hypoaesthesia [Recovered/Resolved]
